FAERS Safety Report 11578389 (Version 1)
Quarter: 2015Q3

REPORT INFORMATION
  Report Type: Spontaneous
  Country: PL (occurrence: PL)
  Receive Date: 20150930
  Receipt Date: 20150930
  Transmission Date: 20151125
  Serious: Yes (Hospitalization)
  Sender: FDA-Public Use
  Company Number: PL-BAYER-2015-432475

PATIENT
  Age: 62 Year
  Sex: Female

DRUGS (1)
  1. ULTRAVIST [Suspect]
     Active Substance: IOPROMIDE
     Indication: COMPUTERISED TOMOGRAM HEAD
     Dosage: 50 ML, UNK
     Route: 042
     Dates: start: 20150429, end: 20150429

REACTIONS (6)
  - Syncope [Recovered/Resolved]
  - Blood pressure decreased [Recovered/Resolved]
  - Erythema [Recovered/Resolved]
  - Unresponsive to stimuli [Recovered/Resolved]
  - Urinary incontinence [Recovered/Resolved]
  - Pallor [Recovered/Resolved]

NARRATIVE: CASE EVENT DATE: 20150429
